FAERS Safety Report 8894688 (Version 1)
Quarter: 2012Q4

REPORT INFORMATION
  Report Type: Report from Study
  Country: US (occurrence: US)
  Receive Date: 20121108
  Receipt Date: 20121108
  Transmission Date: 20130627
  Serious: Yes (Hospitalization, Other)
  Sender: FDA-Public Use
  Company Number: US-ABBOTT-12P-163-1002032-00

PATIENT
  Sex: Male
  Weight: 72.64 kg

DRUGS (3)
  1. HUMIRA [Suspect]
     Indication: CROHN^S DISEASE
     Route: 058
     Dates: end: 201205
  2. HUMIRA [Suspect]
     Route: 058
     Dates: start: 201208
  3. ATENOLOL/AMLODIPINE [Concomitant]
     Indication: HYPERTENSION

REACTIONS (7)
  - Intestinal stenosis [Recovered/Resolved]
  - Pyrexia [Recovered/Resolved]
  - Surgery [Unknown]
  - Postoperative wound infection [Recovered/Resolved]
  - Abdominal pain [Recovered/Resolved]
  - Wound drainage [Recovered/Resolved]
  - Memory impairment [Not Recovered/Not Resolved]
